FAERS Safety Report 18643738 (Version 1)
Quarter: 2020Q4

REPORT INFORMATION
  Report Type: Spontaneous
  Country: BG (occurrence: BG)
  Receive Date: 20201221
  Receipt Date: 20201221
  Transmission Date: 20210114
  Serious: Yes (Death, Other)
  Sender: FDA-Public Use
  Company Number: BG-INCYTE CORPORATION-2019IN013472

PATIENT

DRUGS (2)
  1. JAKAVI [Suspect]
     Active Substance: RUXOLITINIB
     Dosage: UNK
     Route: 048
  2. JAKAVI [Suspect]
     Active Substance: RUXOLITINIB
     Indication: MYELOFIBROSIS
     Dosage: 20 MG, BID
     Route: 048
     Dates: start: 20181213

REACTIONS (13)
  - Leukocytosis [Recovering/Resolving]
  - Blood cholesterol decreased [Unknown]
  - Serum ferritin increased [Unknown]
  - Anaemia [Recovering/Resolving]
  - Blood alkaline phosphatase increased [Unknown]
  - Alanine aminotransferase decreased [Unknown]
  - Suspected COVID-19 [Fatal]
  - Haemoglobin decreased [Unknown]
  - C-reactive protein increased [Unknown]
  - Leukopenia [Unknown]
  - Thrombocytopenia [Unknown]
  - Erythropenia [Unknown]
  - Thrombocytosis [Not Recovered/Not Resolved]

NARRATIVE: CASE EVENT DATE: 20181205
